FAERS Safety Report 11984213 (Version 1)
Quarter: 2016Q1

REPORT INFORMATION
  Report Type: Spontaneous
  Country: US (occurrence: US)
  Receive Date: 20160201
  Receipt Date: 20160201
  Transmission Date: 20160526
  Serious: No
  Sender: FDA-Public Use
  Company Number: US-DSJP-DSU-2015-137880

PATIENT
  Age: 88 Year
  Sex: Male
  Weight: 123.81 kg

DRUGS (3)
  1. COUMADIN [Concomitant]
     Active Substance: WARFARIN SODIUM
     Indication: PRODUCT USED FOR UNKNOWN INDICATION
     Dosage: UNK
  2. DIURETICS [Concomitant]
     Active Substance: UNSPECIFIED INGREDIENT
     Indication: PRODUCT USED FOR UNKNOWN INDICATION
     Dosage: UNK
  3. SAVAYSA [Suspect]
     Active Substance: EDOXABAN TOSYLATE
     Indication: THROMBOSIS
     Dosage: UNK

REACTIONS (1)
  - Blood creatinine increased [Unknown]
